FAERS Safety Report 17078072 (Version 1)
Quarter: 2019Q4

REPORT INFORMATION
  Report Type: Spontaneous
  Country: CN (occurrence: CN)
  Receive Date: 20191126
  Receipt Date: 20191126
  Transmission Date: 20200122
  Serious: Yes (Other)
  Sender: FDA-Public Use
  Company Number: CN-009507513-1911CHN011047

PATIENT
  Age: 54 Year
  Sex: Male

DRUGS (1)
  1. TEMODAL [Suspect]
     Active Substance: TEMOZOLOMIDE
     Indication: CHEMOTHERAPY
     Dosage: 75 MILLIEQUIVALENT PER SQUARE METRE, QD,
     Route: 048

REACTIONS (3)
  - Product use in unapproved indication [Unknown]
  - Brain oedema [Recovering/Resolving]
  - Drug effective for unapproved indication [Unknown]
